FAERS Safety Report 6141328-7 (Version None)
Quarter: 2009Q2

REPORT INFORMATION
  Report Type: 
  Country: None (occurrence: None)
  Receive Date: 20090402
  Receipt Date: 20090326
  Transmission Date: 20091009
  Serious: Yes (Other)
  Sender: FDA-Public Use
  Company Number: US-SANOFI-SYNTHELABO-A03200802497

PATIENT
  Sex: Female
  Weight: 40.4 kg

DRUGS (9)
  1. PIROXICAM [Concomitant]
     Indication: DRUG USE FOR UNKNOWN INDICATION
     Dosage: UNK
     Route: 065
  2. PLAVIX [Suspect]
     Indication: CEREBROVASCULAR ACCIDENT
     Route: 048
     Dates: start: 20050501, end: 20070901
  3. PLAVIX [Suspect]
     Indication: BLOOD CHOLESTEROL INCREASED
     Route: 048
     Dates: start: 20050501, end: 20070901
  4. PLAVIX [Suspect]
     Route: 048
     Dates: start: 20070901
  5. PLAVIX [Suspect]
     Route: 048
     Dates: start: 20070901
  6. BLOOD PRESSURE MEDICATIONS [Concomitant]
     Indication: DRUG USE FOR UNKNOWN INDICATION
     Dosage: UNK
     Route: 065
  7. TRAMADOL [Suspect]
     Indication: PAIN
     Dosage: UNK
     Route: 048
  8. DETROL LA [Suspect]
     Indication: DRUG USE FOR UNKNOWN INDICATION
     Dosage: UNK
     Route: 048
  9. BENADRYL [Concomitant]
     Indication: RHINITIS ALLERGIC
     Dosage: UNK
     Route: 065

REACTIONS (16)
  - ANOREXIA [None]
  - BLADDER DISORDER [None]
  - CONDITION AGGRAVATED [None]
  - CONTUSION [None]
  - DEHYDRATION [None]
  - DYSPEPSIA [None]
  - ERUCTATION [None]
  - IMPAIRED HEALING [None]
  - INSOMNIA [None]
  - MUSCLE SPASMS [None]
  - OEDEMA PERIPHERAL [None]
  - RENAL FAILURE [None]
  - RENAL HAEMORRHAGE [None]
  - RENAL PAIN [None]
  - RETCHING [None]
  - WEIGHT DECREASED [None]
